FAERS Safety Report 18923107 (Version 1)
Quarter: 2021Q1

REPORT INFORMATION
  Report Type: Spontaneous
  Country: DE (occurrence: DE)
  Receive Date: 20210222
  Receipt Date: 20210222
  Transmission Date: 20210420
  Serious: Yes (Other)
  Sender: FDA-Public Use
  Company Number: DE-ADIENNEP-2021AD000038

PATIENT
  Age: 9 Month
  Sex: Female

DRUGS (6)
  1. THIOTEPA. [Suspect]
     Active Substance: THIOTEPA
     Indication: ALLOGENIC STEM CELL TRANSPLANTATION
     Dosage: 2X5 MG/KG (DAY ?2)
  2. FLUDARABIN [Suspect]
     Active Substance: FLUDARABINE PHOSPHATE
     Indication: ALLOGENIC STEM CELL TRANSPLANTATION
     Dosage: 5X30 MG/M2 (DAY ?7 UNTIL DAY ?3) ; IN TOTAL?               ??????
  3. CICLOSPORIN A [Concomitant]
     Active Substance: CYCLOSPORINE
     Indication: PROPHYLAXIS AGAINST GRAFT VERSUS HOST DISEASE
     Dosage: ()
     Route: 042
  4. METHOTREXAT [Concomitant]
     Active Substance: METHOTREXATE
     Indication: PROPHYLAXIS AGAINST GRAFT VERSUS HOST DISEASE
  5. TREOSULFAN [Suspect]
     Active Substance: TREOSULFAN
     Indication: ALLOGENIC STEM CELL TRANSPLANTATION
     Dosage: 3X14,000 MG/M2 (DAY ?6 UNTIL DAY ?4) (42G/M2) ; IN TOTAL?               ??????
  6. THYMOGLOBULIN [Suspect]
     Active Substance: LAPINE T-LYMPHOCYTE IMMUNE GLOBULIN
     Indication: ALLOGENIC STEM CELL TRANSPLANTATION
     Dosage: 10 MG/KG (DAY ?6 UNTIL DAY ?3)

REACTIONS (2)
  - Acute graft versus host disease in skin [Recovered/Resolved]
  - Acute graft versus host disease oral [Recovered/Resolved]
